FAERS Safety Report 6578127-8 (Version None)
Quarter: 2010Q1

REPORT INFORMATION
  Report Type: 
  Country: None (occurrence: None)
  Receive Date: 20100211
  Receipt Date: 20100201
  Transmission Date: 20100710
  Serious: Yes (Other)
  Sender: FDA-Public Use
  Company Number: JP-PFIZER INC-2010017599

PATIENT
  Sex: Male

DRUGS (3)
  1. XALATAN [Suspect]
     Dosage: UNK
     Route: 031
     Dates: start: 20100130
  2. ALCOHOL [Suspect]
  3. TIMOPTOL [Concomitant]
     Route: 031
     Dates: end: 20100101

REACTIONS (1)
  - PALPITATIONS [None]
